FAERS Safety Report 14674433 (Version 1)
Quarter: 2018Q1

REPORT INFORMATION
  Report Type: Spontaneous
  Country: CA (occurrence: CA)
  Receive Date: 20180323
  Receipt Date: 20180323
  Transmission Date: 20180509
  Serious: Yes (Disabling, Other)
  Sender: FDA-Public Use
  Company Number: CA-BAYER-2018-051772

PATIENT
  Age: 35 Year
  Sex: Female
  Weight: 76 kg

DRUGS (2)
  1. MIRENA [Suspect]
     Active Substance: LEVONORGESTREL
     Indication: CONTRACEPTION
     Dosage: 20 MCG/24HR, CONT
     Route: 015
  2. MIRENA [Suspect]
     Active Substance: LEVONORGESTREL
     Indication: CONTRACEPTION

REACTIONS (20)
  - Premature menopause [Unknown]
  - Myalgia [Unknown]
  - Visual impairment [Unknown]
  - Weight increased [Unknown]
  - Abdominal pain [Unknown]
  - Aggression [Unknown]
  - Asthenia [Unknown]
  - Tendon disorder [Unknown]
  - Depression [Unknown]
  - Dizziness [Unknown]
  - Memory impairment [Unknown]
  - Tendonitis [Unknown]
  - Abdominal distension [Unknown]
  - Anosmia [Unknown]
  - Breast discharge [Unknown]
  - Loss of libido [Unknown]
  - Sleep disorder [Unknown]
  - Night sweats [Unknown]
  - Speech disorder [Unknown]
  - Decreased appetite [Unknown]
